FAERS Safety Report 14171606 (Version 1)
Quarter: 2017Q4

REPORT INFORMATION
  Report Type: Spontaneous
  Country: ES (occurrence: ES)
  Receive Date: 20171108
  Receipt Date: 20171108
  Transmission Date: 20180321
  Serious: Yes (Other)
  Sender: FDA-Public Use
  Company Number: ES-MYLANLABS-2017M1069649

PATIENT
  Age: 64 Year
  Sex: Female

DRUGS (2)
  1. ACETAZOLAMIDE. [Suspect]
     Active Substance: ACETAZOLAMIDE
     Indication: PRODUCT USED FOR UNKNOWN INDICATION
     Route: 048
  2. SULFUR HEXAFLUORIDE [Suspect]
     Active Substance: SULFUR HEXAFLUORIDE
     Indication: PRODUCT USED FOR UNKNOWN INDICATION
     Dosage: 0.3 ML (100%) INSTEAD OF 20%
     Route: 047

REACTIONS (3)
  - Hypotony of eye [Recovered/Resolved]
  - Transplant failure [Recovered/Resolved]
  - Choroidal detachment [Recovered/Resolved]
